FAERS Safety Report 4750274-2 (Version None)
Quarter: 2005Q3

REPORT INFORMATION
  Report Type: 
  Country: None (occurrence: None)
  Receive Date: 20050823
  Receipt Date: 20050726
  Transmission Date: 20060218
  Serious: Yes (Other)
  Sender: FDA-Public Use
  Company Number: US-AMGEN-US144058

PATIENT
  Sex: Male

DRUGS (5)
  1. ENBREL [Suspect]
     Indication: PUSTULAR PSORIASIS
     Dates: start: 20050330, end: 20050726
  2. INTERFERON [Suspect]
     Indication: HEPATITIS C
     Dates: start: 20050113
  3. PEGASYS [Suspect]
     Indication: HEPATITIS C
     Dates: start: 20050301
  4. CYCLOSPORINE [Concomitant]
     Indication: PSORIASIS
     Dates: start: 20050330
  5. RIBAVIRIN [Concomitant]
     Indication: HEPATITIS C
     Dates: start: 20050113

REACTIONS (3)
  - CONDITION AGGRAVATED [None]
  - PLATELET COUNT DECREASED [None]
  - WHITE BLOOD CELL COUNT DECREASED [None]
